FAERS Safety Report 6374070-8 (Version None)
Quarter: 2009Q3

REPORT INFORMATION
  Report Type: 
  Country: None (occurrence: None)
  Receive Date: 20090924
  Receipt Date: 20090630
  Transmission Date: 20100115
  Serious: No
  Sender: FDA-Public Use
  Company Number: US-ASTRAZENECA-2009UW18290

PATIENT
  Sex: Male

DRUGS (5)
  1. SEROQUEL [Suspect]
     Indication: INSOMNIA
     Route: 048
  2. SEROQUEL [Suspect]
     Indication: BIPOLAR DISORDER
     Route: 048
  3. CHOLESTEROL MEDICATION [Concomitant]
  4. ZOLOFT [Concomitant]
  5. LISINOPRIL [Concomitant]

REACTIONS (2)
  - DRUG SCREEN POSITIVE [None]
  - PNEUMONIA PRIMARY ATYPICAL [None]
